FAERS Safety Report 9862649 (Version 1)
Quarter: 2014Q1

REPORT INFORMATION
  Report Type: Spontaneous
  Country: AU (occurrence: None)
  Receive Date: 20140130
  Receipt Date: 20140130
  Transmission Date: 20141002
  Serious: Yes (Death)
  Sender: FDA-Public Use
  Company Number: BD-2014-0001

PATIENT
  Age: 34 Year
  Sex: Female

DRUGS (8)
  1. METOCLOPRAMIDE [Suspect]
  2. DULOXETINE [Suspect]
  3. QUETIAPINE [Suspect]
  4. CLONAZEPAM [Concomitant]
  5. AMITRIPTYLINE(AMITRIPTYLINE) [Concomitant]
  6. CODEINE(CODEINE) [Concomitant]
  7. DIAZEPAM(DIAZEPAM) [Concomitant]
  8. OXYCODONE(OXYCODONE) [Concomitant]

REACTIONS (1)
  - Myocardial ischaemia [None]
